FAERS Safety Report 6615401-0 (Version None)
Quarter: 2010Q1

REPORT INFORMATION
  Report Type: 
  Country: None (occurrence: None)
  Receive Date: 20100305
  Receipt Date: 20091103
  Transmission Date: 20100710
  Serious: No
  Sender: FDA-Public Use
  Company Number: A0814758A

PATIENT
  Age: 61 Year
  Sex: Female

DRUGS (4)
  1. ROPINIROLE [Suspect]
     Indication: RESTLESS LEGS SYNDROME
     Dosage: 1MG FOUR TIMES PER DAY
     Route: 048
     Dates: start: 20080101
  2. SIMVASTATIN [Concomitant]
  3. FUROSEMIDE [Concomitant]
  4. DILTIAZEM HCL [Concomitant]

REACTIONS (1)
  - CONDITION AGGRAVATED [None]
